FAERS Safety Report 8349151-X (Version None)
Quarter: 2012Q2

REPORT INFORMATION
  Report Type: 
  Country: None (occurrence: None)
  Receive Date: 20120510
  Receipt Date: 20120430
  Transmission Date: 20120825
  Serious: Yes (Life-Threatening)
  Sender: FDA-Public Use
  Company Number: IT-MPIJNJ-2012-01796

PATIENT

DRUGS (3)
  1. CYCLOPHOSPHAMIDE [Concomitant]
     Indication: AMYLOIDOSIS
     Dosage: 500 MG, 1/WEEK
     Route: 042
     Dates: start: 20111229, end: 20120112
  2. DEXAMETHASONE [Concomitant]
     Indication: AMYLOIDOSIS
     Dosage: 20 MG, 1/WEEK
     Route: 042
     Dates: start: 20111229, end: 20120112
  3. VELCADE [Suspect]
     Indication: AMYLOIDOSIS
     Dosage: 1.8 MG, 1/WEEK
     Route: 042
     Dates: start: 20111229, end: 20120112

REACTIONS (2)
  - OFF LABEL USE [None]
  - ORTHOSTATIC HYPOTENSION [None]
